FAERS Safety Report 17861800 (Version 5)
Quarter: 2020Q3

REPORT INFORMATION
  Report Type: Spontaneous
  Country: US (occurrence: US)
  Receive Date: 20200604
  Receipt Date: 20200819
  Transmission Date: 20201103
  Serious: Yes (Death, Hospitalization)
  Sender: FDA-Public Use
  Company Number: US-ACTELION-A-NJ2020-205768

PATIENT
  Age: 75 Year
  Sex: Female

DRUGS (3)
  1. VELETRI [Suspect]
     Active Substance: EPOPROSTENOL
     Dosage: 62.342 NG/KG, PER MIN
     Route: 042
  2. VELETRI [Suspect]
     Active Substance: EPOPROSTENOL
     Dosage: 56 NG/KG, PER MIN
     Route: 042
     Dates: start: 20200724
  3. VELETRI [Suspect]
     Active Substance: EPOPROSTENOL
     Indication: PULMONARY ARTERIAL HYPERTENSION
     Dosage: 42 NG/KG, PER MIN
     Route: 042
     Dates: start: 20200423

REACTIONS (7)
  - Diarrhoea [Unknown]
  - Abdominal distension [Unknown]
  - Hypotension [Unknown]
  - Ascites [Not Recovered/Not Resolved]
  - Death [Fatal]
  - Adverse event [Not Recovered/Not Resolved]
  - Fluid retention [Not Recovered/Not Resolved]

NARRATIVE: CASE EVENT DATE: 20200424
